FAERS Safety Report 4852766-4 (Version None)
Quarter: 2005Q4

REPORT INFORMATION
  Report Type: 
  Country: None (occurrence: None)
  Receive Date: 20051125
  Receipt Date: 20050815
  Transmission Date: 20060501
  Serious: Yes (Other)
  Sender: FDA-Public Use
  Company Number: HQWYE938616AUG05

PATIENT
  Age: 61 Year
  Sex: Female
  Weight: 75.9 kg

DRUGS (7)
  1. ZOSYN [Suspect]
     Indication: CELLULITIS
     Dosage: 3.375 G 1X PER 6 HR, INTRAVENOUS; 2.25 G 1X PER 8 HR, INTRAVENOUS
     Route: 042
     Dates: start: 20050808, end: 20050811
  2. ZOSYN [Suspect]
     Indication: CELLULITIS
     Dosage: 3.375 G 1X PER 6 HR, INTRAVENOUS; 2.25 G 1X PER 8 HR, INTRAVENOUS
     Route: 042
     Dates: start: 20050811, end: 20050811
  3. LEXAPRO [Concomitant]
  4. NEURONTIN [Concomitant]
  5. INSULIN [Concomitant]
  6. PREVACID [Concomitant]
  7. PERCOCET [Concomitant]

REACTIONS (1)
  - RENAL FAILURE [None]
